FAERS Safety Report 7211826-3 (Version None)
Quarter: 2011Q1

REPORT INFORMATION
  Report Type: 
  Country: None (occurrence: None)
  Receive Date: 20110105
  Receipt Date: 20101104
  Transmission Date: 20110831
  Serious: Yes (Other)
  Sender: FDA-Public Use
  Company Number: GB-AMGEN-GBRSP2010004331

PATIENT

DRUGS (11)
  1. ATENOLOL [Concomitant]
     Indication: BLOOD PRESSURE INCREASED
     Dosage: 50 MG, 1X/DAY
     Route: 048
  2. ACUGESIC [Concomitant]
     Indication: PAIN
     Dosage: 75 UG, HOURLY
  3. LOSARTAN POTASSIUM [Concomitant]
     Indication: BLOOD PRESSURE INCREASED
     Dosage: 20 MG, 1X/DAY
     Route: 048
  4. LANSOPRAZOLE [Concomitant]
     Indication: GASTRIC DISORDER
     Dosage: 20 MG, 1X/DAY
     Route: 048
  5. MACROGOL [Concomitant]
     Indication: CONSTIPATION
     Dosage: 1 DF, 1X/DAY
     Route: 048
  6. ETORICOXIB [Suspect]
     Indication: PAIN
     Dosage: 50 MG, 1X/DAY
     Route: 048
     Dates: end: 20101001
  7. AMITRIPTYLINE [Concomitant]
     Indication: PAIN
     Dosage: 10 MG, UNK
     Route: 048
  8. ACETYLSALICYLIC ACID [Concomitant]
     Indication: PROPHYLAXIS
  9. PREGABALIN [Concomitant]
     Indication: PAIN
     Dosage: 150 MG, 1X/DAY
     Route: 048
  10. ENBREL [Suspect]
     Indication: ANKYLOSING SPONDYLITIS
     Dosage: 50 MG 1 TIMES PER 1 WK
     Route: 058
     Dates: start: 20100212, end: 20101001
  11. ACETYLSALICYLIC ACID [Concomitant]
     Indication: BLOOD PRESSURE INCREASED
     Dosage: 75 MG, 1X/DAY
     Route: 048

REACTIONS (1)
  - CEREBRAL ARTERY OCCLUSION [None]
